FAERS Safety Report 14422048 (Version 4)
Quarter: 2018Q1

REPORT INFORMATION
  Report Type: Report from Study
  Country: None (occurrence: US)
  Receive Date: 20180123
  Receipt Date: 20180221
  Transmission Date: 20180509
  Serious: Yes (Hospitalization, Other)
  Sender: FDA-Public Use
  Company Number: US-ABBVIE-18K-163-2230755-00

PATIENT
  Age: 26 Year
  Sex: Female
  Weight: 62.2 kg

DRUGS (3)
  1. HUMIRA [Suspect]
     Active Substance: ADALIMUMAB
     Indication: UVEITIS
     Route: 058
     Dates: start: 20180208
  2. METHOTREXATE. [Concomitant]
     Active Substance: METHOTREXATE
     Indication: PRODUCT USED FOR UNKNOWN INDICATION
  3. HUMIRA [Suspect]
     Active Substance: ADALIMUMAB
     Indication: PSORIASIS
     Route: 058
     Dates: start: 2004, end: 201712

REACTIONS (15)
  - Cholelithiasis [Recovering/Resolving]
  - Injection site erythema [Unknown]
  - Gallbladder disorder [Unknown]
  - Butterfly rash [Recovered/Resolved]
  - Vision blurred [Unknown]
  - Post procedural complication [Recovered/Resolved]
  - Bladder neck obstruction [Recovered/Resolved]
  - Systemic lupus erythematosus [Not Recovered/Not Resolved]
  - Post procedural complication [Recovered/Resolved]
  - Procedural pain [Recovered/Resolved]
  - Flatulence [Unknown]
  - Injection site irritation [Unknown]
  - Constipation [Recovered/Resolved]
  - Ingrowing nail [Recovering/Resolving]
  - Urinary retention [Recovered/Resolved]

NARRATIVE: CASE EVENT DATE: 2016
